FAERS Safety Report 16211023 (Version 2)
Quarter: 2019Q2

REPORT INFORMATION
  Report Type: Spontaneous
  Country: IL (occurrence: IL)
  Receive Date: 20190418
  Receipt Date: 20190429
  Transmission Date: 20190711
  Serious: Yes (Hospitalization, Other)
  Sender: FDA-Public Use
  Company Number: IL-009507513-1904ISR006842

PATIENT
  Age: 76 Year
  Sex: Female

DRUGS (1)
  1. KEYTRUDA [Suspect]
     Active Substance: PEMBROLIZUMAB
     Indication: CERVIX CARCINOMA
     Dosage: 200MG EVERY 21 DAYS
     Dates: start: 2018

REACTIONS (11)
  - Renal failure [Unknown]
  - Rash [Unknown]
  - Hydronephrosis [Unknown]
  - Acute kidney injury [Unknown]
  - Off label use [Unknown]
  - Malignant neoplasm progression [Unknown]
  - Pulmonary mass [Not Recovered/Not Resolved]
  - Asthenia [Unknown]
  - Ureteric dilatation [Unknown]
  - Pancytopenia [Unknown]
  - Lymphadenopathy [Unknown]

NARRATIVE: CASE EVENT DATE: 2018
